FAERS Safety Report 23263241 (Version 1)
Quarter: 2023Q4

REPORT INFORMATION
  Report Type: Spontaneous
  Country: US (occurrence: US)
  Receive Date: 20231205
  Receipt Date: 20231205
  Transmission Date: 20240110
  Serious: No
  Sender: FDA-Public Use
  Company Number: US-HALOZYME THERAPEUTICS, INC.-2023-US-TX -03422

PATIENT

DRUGS (3)
  1. XYOSTED [Suspect]
     Active Substance: TESTOSTERONE ENANTHATE
     Indication: Product used for unknown indication
     Dosage: 75 MILLIGRAM, WITHDRAWN
     Route: 058
  2. XYOSTED [Suspect]
     Active Substance: TESTOSTERONE ENANTHATE
     Dosage: 100 MILLIGRAM, WITHDRAWN
     Route: 058
  3. XYOSTED [Suspect]
     Active Substance: TESTOSTERONE ENANTHATE
     Dosage: 75 MILLIGRAM
     Route: 058

REACTIONS (2)
  - Injection site mass [None]
  - Injection site nodule [None]
